FAERS Safety Report 6295640-1 (Version None)
Quarter: 2009Q3

REPORT INFORMATION
  Report Type: 
  Country: None (occurrence: None)
  Receive Date: 20090804
  Receipt Date: 20090727
  Transmission Date: 20100115
  Serious: Yes (Hospitalization, Other)
  Sender: FDA-Public Use
  Company Number: US-BIOGENIDEC-2009BI018413

PATIENT
  Age: 53 Year
  Sex: Female

DRUGS (1)
  1. AVONEX [Suspect]
     Indication: MULTIPLE SCLEROSIS
     Route: 030
     Dates: start: 20081204, end: 20090601

REACTIONS (5)
  - BLOOD PRESSURE DECREASED [None]
  - DEHYDRATION [None]
  - DYSSTASIA [None]
  - MULTIPLE SCLEROSIS RELAPSE [None]
  - URINARY INCONTINENCE [None]
